FAERS Safety Report 18031051 (Version 1)
Quarter: 2020Q3

REPORT INFORMATION
  Report Type: Spontaneous
  Country: US (occurrence: US)
  Receive Date: 20200715
  Receipt Date: 20200715
  Transmission Date: 20201103
  Serious: Yes (Other)
  Sender: FDA-Public Use
  Company Number: None

PATIENT
  Age: 65 Year
  Sex: Male

DRUGS (6)
  1. DONEPEZIL 10MG [Concomitant]
     Active Substance: DONEPEZIL
  2. ATORVASTATIN 10MG [Concomitant]
     Active Substance: ATORVASTATIN
  3. BIKTARVY [Suspect]
     Active Substance: BICTEGRAVIR SODIUM\EMTRICITABINE\TENOFOVIR ALAFENAMIDE FUMARATE
     Indication: HIV INFECTION
     Route: 048
     Dates: end: 20200715
  4. TERAZOSIN [Concomitant]
     Active Substance: TERAZOSIN HYDROCHLORIDE
  5. ACYCLOVIR 400MG [Concomitant]
     Active Substance: ACYCLOVIR
  6. LISINOPRIL 10MG [Concomitant]
     Active Substance: LISINOPRIL

REACTIONS (2)
  - Abdominal discomfort [None]
  - Fat redistribution [None]

NARRATIVE: CASE EVENT DATE: 20200715
